FAERS Safety Report 13413647 (Version 4)
Quarter: 2022Q3

REPORT INFORMATION
  Report Type: Spontaneous
  Country: US (occurrence: US)
  Receive Date: 20170406
  Receipt Date: 20220726
  Transmission Date: 20221026
  Serious: No
  Sender: FDA-Public Use
  Company Number: US-JNJFOC-20170317814

PATIENT
  Sex: Male

DRUGS (13)
  1. RISPERDAL [Suspect]
     Active Substance: RISPERIDONE
     Indication: Product used for unknown indication
     Route: 048
     Dates: start: 20140219, end: 20140324
  2. INVEGA [Suspect]
     Active Substance: PALIPERIDONE
     Indication: Affective disorder
     Route: 048
     Dates: start: 20090908, end: 20110506
  3. INVEGA [Suspect]
     Active Substance: PALIPERIDONE
     Indication: Psychotic disorder
     Route: 048
     Dates: start: 20120201, end: 20130617
  4. INVEGA [Suspect]
     Active Substance: PALIPERIDONE
     Indication: Drug dependence
  5. INVEGA SUSTENNA [Suspect]
     Active Substance: PALIPERIDONE PALMITATE
     Indication: Affective disorder
     Route: 030
     Dates: start: 20100623
  6. INVEGA SUSTENNA [Suspect]
     Active Substance: PALIPERIDONE PALMITATE
     Indication: Psychotic disorder
     Route: 030
     Dates: start: 20100825, end: 20101202
  7. INVEGA SUSTENNA [Suspect]
     Active Substance: PALIPERIDONE PALMITATE
     Route: 030
     Dates: start: 20110506
  8. INVEGA SUSTENNA [Suspect]
     Active Substance: PALIPERIDONE PALMITATE
     Route: 030
     Dates: start: 20120201, end: 20130617
  9. INVEGA SUSTENNA [Suspect]
     Active Substance: PALIPERIDONE PALMITATE
     Route: 030
  10. RISPERDAL CONSTA [Suspect]
     Active Substance: RISPERIDONE
     Indication: Affective disorder
     Route: 030
     Dates: start: 20140219, end: 20140324
  11. RISPERDAL CONSTA [Suspect]
     Active Substance: RISPERIDONE
     Indication: Psychotic disorder
  12. RISPERDAL CONSTA [Suspect]
     Active Substance: RISPERIDONE
  13. RISPERDAL CONSTA [Suspect]
     Active Substance: RISPERIDONE

REACTIONS (2)
  - Emotional distress [Unknown]
  - Gynaecomastia [Unknown]
